FAERS Safety Report 24636895 (Version 1)
Quarter: 2024Q4

REPORT INFORMATION
  Report Type: Spontaneous
  Country: US (occurrence: None)
  Receive Date: 20241118
  Receipt Date: 20241118
  Transmission Date: 20250114
  Serious: Yes (unspecified)
  Sender: Public
  Company Number: None

PATIENT
  Age: 43 Year
  Sex: Male
  Weight: 135 kg

DRUGS (1)
  1. NEW SKIN BANDAGE [Suspect]
     Active Substance: BENZETHONIUM CHLORIDE
     Indication: Wound
     Route: 061
     Dates: start: 20240701, end: 20240801

REACTIONS (4)
  - Nonspecific reaction [None]
  - Application site pain [None]
  - Product adhesion issue [None]
  - Product quality issue [None]

NARRATIVE: CASE EVENT DATE: 20240901
